FAERS Safety Report 18463874 (Version 1)
Quarter: 2020Q4

REPORT INFORMATION
  Report Type: Report from Study
  Country: US (occurrence: US)
  Receive Date: 20201104
  Receipt Date: 20201104
  Transmission Date: 20210114
  Serious: Yes (Death, Life-Threatening)
  Sender: FDA-Public Use
  Company Number: US-ASTRAZENECA-2020SF42899

PATIENT
  Sex: Male
  Weight: 54.4 kg

DRUGS (4)
  1. TAGRISSO [Suspect]
     Active Substance: OSIMERTINIB
     Indication: LUNG NEOPLASM MALIGNANT
     Route: 048
     Dates: start: 2020
  2. TAGRISSO [Suspect]
     Active Substance: OSIMERTINIB
     Indication: LUNG NEOPLASM MALIGNANT
     Route: 048
  3. TAGRISSO [Suspect]
     Active Substance: OSIMERTINIB
     Indication: SQUAMOUS CELL CARCINOMA
     Route: 048
  4. TAGRISSO [Suspect]
     Active Substance: OSIMERTINIB
     Indication: SQUAMOUS CELL CARCINOMA
     Route: 048
     Dates: start: 2020

REACTIONS (3)
  - Weight decreased [Unknown]
  - Death [Fatal]
  - Pneumonitis [Unknown]

NARRATIVE: CASE EVENT DATE: 20201030
